FAERS Safety Report 4679778-8 (Version None)
Quarter: 2005Q2

REPORT INFORMATION
  Report Type: 
  Country: None (occurrence: None)
  Receive Date: 20050531
  Receipt Date: 20050511
  Transmission Date: 20051028
  Serious: Yes (Hospitalization)
  Sender: FDA-Public Use
  Company Number: 2005075546

PATIENT
  Age: 53 Year
  Sex: Male

DRUGS (2)
  1. CORTRIL [Suspect]
     Indication: BLOOD CORTISOL
     Dosage: 20 MG (1 IN 1 D)
  2. DECADRON [Suspect]
     Indication: BLOOD CORTICOTROPHIN INCREASED
     Dosage: 0.75 MG (1 IN 1 D)

REACTIONS (6)
  - ADRENAL INSUFFICIENCY [None]
  - BLOOD CORTICOTROPHIN ABNORMAL [None]
  - GLUCOSE TOLERANCE IMPAIRED [None]
  - HEPATIC FUNCTION ABNORMAL [None]
  - MUCOSAL DISCOLOURATION [None]
  - PIGMENTATION DISORDER [None]
